FAERS Safety Report 11652816 (Version 1)
Quarter: 2015Q4

REPORT INFORMATION
  Report Type: Spontaneous
  Country: FI (occurrence: FI)
  Receive Date: 20151022
  Receipt Date: 20151022
  Transmission Date: 20160304
  Serious: Yes (Other)
  Sender: FDA-Public Use
  Company Number: FI-SA-2015SA139087

PATIENT
  Sex: Female

DRUGS (1)
  1. AUBAGIO [Suspect]
     Active Substance: TERIFLUNOMIDE
     Route: 065
     Dates: start: 201411

REACTIONS (8)
  - Nasopharyngitis [Unknown]
  - Mood swings [Not Recovered/Not Resolved]
  - Uterine inflammation [Recovered/Resolved]
  - Gastroenteritis [Unknown]
  - Colitis [Unknown]
  - Pneumonia [Not Recovered/Not Resolved]
  - Anxiety [Recovered/Resolved]
  - Appendicitis [Unknown]

NARRATIVE: CASE EVENT DATE: 2015
